FAERS Safety Report 8516666-0 (Version None)
Quarter: 2012Q2

REPORT INFORMATION
  Report Type: 
  Country: None (occurrence: None)
  Receive Date: 20120406
  Receipt Date: 20101118
  Transmission Date: 20120825
  Serious: Yes (Other)
  Sender: FDA-Public Use
  Company Number: PHHY2010US74869

PATIENT
  Age: 38 Year
  Sex: Male

DRUGS (4)
  1. CALCIUM D (CALCIUM, COLECALCIFEROL) [Concomitant]
  2. DARVOCET-N (DEXTROPROPOXYPHENE NAPSILATE, PARACETAMOL) [Concomitant]
  3. ACETAMINOPHEN [Concomitant]
  4. TASIGNA [Suspect]
     Indication: CHRONIC MYELOID LEUKAEMIA
     Dosage: 400 MG, BID
     Dates: start: 20101015, end: 20101102

REACTIONS (1)
  - HEPATITIS [None]
